FAERS Safety Report 5244807-X (Version None)
Quarter: 2007Q1

REPORT INFORMATION
  Report Type: 
  Country: None (occurrence: None)
  Receive Date: 20061201
  Receipt Date: 20060811
  Transmission Date: 20070707
  Serious: No
  Sender: FDA-Public Use
  Company Number: 2006PV019271

PATIENT
  Age: 43 Year
  Sex: Female
  Weight: 104.3273 kg

DRUGS (9)
  1. BYETTA [Suspect]
     Indication: DIABETES MELLITUS NON-INSULIN-DEPENDENT
     Dosage: SEE IMAGE
     Route: 058
     Dates: start: 20060611, end: 20060806
  2. BYETTA [Suspect]
     Indication: DIABETES MELLITUS NON-INSULIN-DEPENDENT
     Dosage: SEE IMAGE
     Route: 058
     Dates: start: 20060807
  3. METFORMIN [Concomitant]
  4. AVANDIA [Concomitant]
  5. VYTORIN [Concomitant]
  6. BENACAR [Concomitant]
  7. IBUPROFEN [Concomitant]
  8. TYLENOL [Concomitant]
  9. DARVOCET [Concomitant]

REACTIONS (2)
  - ALLERGIC SINUSITIS [None]
  - COUGH [None]
